FAERS Safety Report 7726141-9 (Version None)
Quarter: 2011Q3

REPORT INFORMATION
  Report Type: 
  Country: None (occurrence: None)
  Receive Date: 20110902
  Receipt Date: 20110825
  Transmission Date: 20111222
  Serious: Yes (Hospitalization, Other)
  Sender: FDA-Public Use
  Company Number: DE-TEVA-298009GER

PATIENT
  Age: 0 Year
  Sex: Male
  Weight: 3.95 kg

DRUGS (4)
  1. METOPROLOL [Suspect]
     Dosage: 49.5 MILLIGRAM;
     Route: 064
     Dates: start: 20100626, end: 20110217
  2. NEBIVOLOL HCL [Concomitant]
     Dosage: 2.5 MILLIGRAM;
     Route: 064
     Dates: start: 20100509, end: 20100625
  3. ACETAMINOPHEN [Concomitant]
     Dosage: 500 [MG ]/ 4-5 PILLS PER MONTH
     Route: 064
  4. FOLIO FORTE [Concomitant]
     Dosage: .4 MILLIGRAM;
     Route: 064
     Dates: start: 20090601, end: 20100811

REACTIONS (1)
  - SUPRAVENTRICULAR TACHYCARDIA [None]
